FAERS Safety Report 9966159 (Version 1)
Quarter: 2014Q1

REPORT INFORMATION
  Report Type: Report from Study
  Country: US (occurrence: US)
  Receive Date: 20140305
  Receipt Date: 20140305
  Transmission Date: 20141002
  Serious: No
  Sender: FDA-Public Use
  Company Number: US-ABBVIE-13P-163-1122950-00

PATIENT
  Sex: Female

DRUGS (13)
  1. HUMIRA [Suspect]
     Indication: CROHN^S DISEASE
     Dates: start: 20130603
  2. TRICOR [Concomitant]
     Indication: BLOOD TRIGLYCERIDES
  3. CRESTOR [Concomitant]
     Indication: BLOOD CHOLESTEROL
     Dosage: INSURANCE ISN^T COVERING, SO IS NOT CURRENTLY TAKING
  4. BABY ASPIRIN [Concomitant]
     Indication: VISUAL IMPAIRMENT
     Dosage: 4 TABLETS DAILY
  5. EFFEXOR [Concomitant]
     Indication: DEPRESSION
  6. BUSPAR [Concomitant]
     Indication: ANXIETY
  7. SLOW-MAG [Concomitant]
     Indication: VITAMIN SUPPLEMENTATION
     Dosage: 2 TABLETS DAILY
  8. POTASSIUM [Concomitant]
     Indication: MINERAL SUPPLEMENTATION
  9. TOPROL [Concomitant]
     Indication: HEART RATE INCREASED
  10. PRILOSEC [Concomitant]
     Indication: GASTRIC ULCER
  11. VITAMIN D [Concomitant]
     Indication: MINERAL SUPPLEMENTATION
  12. SODIUM BICARBONATE [Concomitant]
     Indication: VITAMIN SUPPLEMENTATION
  13. GLIMEPIRIDE [Concomitant]
     Indication: DIABETES MELLITUS
     Dosage: 2 MG DAILY

REACTIONS (1)
  - Urinary tract infection [Not Recovered/Not Resolved]
